FAERS Safety Report 4339720-6 (Version None)
Quarter: 2004Q1

REPORT INFORMATION
  Report Type: 
  Country: None (occurrence: None)
  Receive Date: 20040329
  Receipt Date: 20040206
  Transmission Date: 20041129
  Serious: No
  Sender: FDA-Public Use
  Company Number: 04P-163-0249557-00

PATIENT
  Age: 53 Year
  Sex: Female
  Weight: 91.6266 kg

DRUGS (10)
  1. HUMIRA [Suspect]
     Indication: RHEUMATOID ARTHRITIS
     Dosage: 40 MG, 1 IN 2 WK, SUBCUTANEOUS
     Route: 058
     Dates: start: 20030101
  2. ZOLPIDEM TARTRATE [Concomitant]
  3. ESOMEPRAZOLE [Concomitant]
  4. CITALOPRAM HYDROBROMIDE [Concomitant]
  5. LEVOTHYROXINE SODIUM [Concomitant]
  6. GLIPIZIDE [Concomitant]
  7. KARVEA HCT [Concomitant]
  8. ATORVASTATIN [Concomitant]
  9. REFECOXIB [Concomitant]
  10. METHYLPREDNISOLONE [Concomitant]

REACTIONS (4)
  - INJECTION SITE BURNING [None]
  - INJECTION SITE SWELLING [None]
  - INJECTION SITE WARMTH [None]
  - NASOPHARYNGITIS [None]
